FAERS Safety Report 11172928 (Version 1)
Quarter: 2015Q2

REPORT INFORMATION
  Report Type: Spontaneous
  Country: US (occurrence: US)
  Receive Date: 20150608
  Receipt Date: 20150608
  Transmission Date: 20150821
  Serious: Yes (Life-Threatening, Hospitalization, Other)
  Sender: FDA-Public Use
  Company Number: US-PERRIGO-15US005681

PATIENT
  Age: 26 Year
  Sex: Male

DRUGS (3)
  1. PRESCRIPTION NARCOTICS [Concomitant]
     Indication: DRUG SCREEN POSITIVE
     Route: 065
  2. GOOD NEIGHBOR PHARMACY ANTI DIARRHEAL [Suspect]
     Active Substance: LOPERAMIDE HYDROCHLORIDE
     Indication: SUICIDE ATTEMPT
     Dosage: 200 MG, BID
     Route: 048
  3. GOOD NEIGHBOR PHARMACY ANTI DIARRHEAL [Suspect]
     Active Substance: LOPERAMIDE HYDROCHLORIDE
     Indication: DRUG ABUSE
     Dosage: 400 MG, BID
     Route: 048

REACTIONS (5)
  - Drug withdrawal syndrome [Unknown]
  - Cardiac arrest [Unknown]
  - Dependence [Unknown]
  - Drug abuse [Unknown]
  - Overdose [Unknown]
